FAERS Safety Report 9758798 (Version 1)
Quarter: 2013Q4

REPORT INFORMATION
  Report Type: Spontaneous
  Country: US (occurrence: None)
  Receive Date: 20131216
  Receipt Date: 20131216
  Transmission Date: 20140711
  Serious: Yes (Other)
  Sender: FDA-Public Use
  Company Number: 064050

PATIENT
  Sex: Male
  Weight: 88 kg

DRUGS (1)
  1. CIMZIA [Suspect]
     Indication: RHEUMATOID ARTHRITIS
     Dosage: (400 MG 1X/4 WEEKS, 12 WEEK INDUCTION)

REACTIONS (5)
  - Chest pain [None]
  - Sinus headache [None]
  - Vitreous floaters [None]
  - Pain in extremity [None]
  - Glare [None]
